FAERS Safety Report 8833679 (Version 1)
Quarter: 2012Q4

REPORT INFORMATION
  Report Type: 
  Country: BR (occurrence: BR)
  Receive Date: 20121010
  Receipt Date: 20121010
  Transmission Date: 20130627
  Serious: Yes (Other)
  Sender: FDA-Public Use
  Company Number: BR-BAYER-2012-104085

PATIENT
  Age: 23 Year
  Sex: Male

DRUGS (2)
  1. BETAFERON [Suspect]
     Dosage: 1 ml, QOD
     Route: 058
     Dates: start: 2010, end: 201208
  2. VITAMIN D [Concomitant]

REACTIONS (4)
  - Influenza like illness [None]
  - Fatigue [None]
  - Sensation of heaviness [None]
  - Mobility decreased [None]
